FAERS Safety Report 17362054 (Version 3)
Quarter: 2020Q1

REPORT INFORMATION
  Report Type: Spontaneous
  Country: IT (occurrence: IT)
  Receive Date: 20200203
  Receipt Date: 20200226
  Transmission Date: 20200409
  Serious: Yes (Hospitalization, Other)
  Sender: FDA-Public Use
  Company Number: NVSC2020IT021052

PATIENT

DRUGS (14)
  1. TORVAST [Suspect]
     Active Substance: ATORVASTATIN
     Indication: PRODUCT USED FOR UNKNOWN INDICATION
     Dosage: 40 MG, UNK
     Route: 065
  2. RANEXA [Suspect]
     Active Substance: RANOLAZINE
     Indication: PRODUCT USED FOR UNKNOWN INDICATION
     Dosage: 1 DF, BID
     Route: 065
  3. RANEXA [Suspect]
     Active Substance: RANOLAZINE
     Dosage: 2 DF, QD
     Route: 065
  4. MEDROL [Suspect]
     Active Substance: METHYLPREDNISOLONE
     Indication: PRODUCT USED FOR UNKNOWN INDICATION
     Dosage: 4 MG, QD
     Route: 065
  5. NUCALA [Suspect]
     Active Substance: MEPOLIZUMAB
     Indication: CARDIAC FAILURE
     Dosage: UNK
     Route: 065
  6. SPIRIVA [Suspect]
     Active Substance: TIOTROPIUM BROMIDE MONOHYDRATE
     Indication: PRODUCT USED FOR UNKNOWN INDICATION
     Dosage: UNK
     Route: 065
  7. PROCORALAN [Suspect]
     Active Substance: IVABRADINE
     Indication: PRODUCT USED FOR UNKNOWN INDICATION
     Dosage: 2 DF, Q12H
     Route: 065
  8. TAREG [Suspect]
     Active Substance: VALSARTAN
     Indication: PRODUCT USED FOR UNKNOWN INDICATION
     Dosage: 1 DF, QD
     Route: 065
  9. METFORMINA HEXAL [Suspect]
     Active Substance: METFORMIN HYDROCHLORIDE
     Indication: PRODUCT USED FOR UNKNOWN INDICATION
     Dosage: 500 MG, Q12H
     Route: 065
  10. NUCALA [Suspect]
     Active Substance: MEPOLIZUMAB
     Indication: BLOOD PRESSURE ABNORMAL
  11. NUCALA [Suspect]
     Active Substance: MEPOLIZUMAB
     Indication: DYSLIPIDAEMIA
  12. LASIX [Suspect]
     Active Substance: FUROSEMIDE
     Indication: PRODUCT USED FOR UNKNOWN INDICATION
     Dosage: 24 MG, Q6H
     Route: 065
  13. NUCALA [Suspect]
     Active Substance: MEPOLIZUMAB
     Indication: ASTHMA
  14. CARDIOASPIRIN [Suspect]
     Active Substance: ASPIRIN
     Indication: PRODUCT USED FOR UNKNOWN INDICATION
     Dosage: 1 DF, QD
     Route: 065

REACTIONS (4)
  - Cerebral ischaemia [Unknown]
  - Ischaemia [Unknown]
  - Brain injury [Unknown]
  - Cerebrovascular accident [Unknown]
